FAERS Safety Report 9293311 (Version 1)
Quarter: 2013Q2

REPORT INFORMATION
  Report Type: Report from Study
  Country: TW (occurrence: TW)
  Receive Date: 20130516
  Receipt Date: 20130516
  Transmission Date: 20140414
  Serious: Yes (Death, Hospitalization, Other)
  Sender: FDA-Public Use
  Company Number: PHHY2010TW51156

PATIENT
  Age: 75 Year
  Sex: Male
  Weight: 68 kg

DRUGS (3)
  1. ICL670A [Suspect]
     Indication: IRON OVERLOAD
     Dosage: 22.62 MG
     Dates: start: 20091211, end: 20091228
  2. ICL670A [Suspect]
     Dosage: 18.85 MG
     Dates: start: 20091228, end: 20100604
  3. TAZOBACTAM SODIUM [Concomitant]

REACTIONS (11)
  - Death [Fatal]
  - Septic shock [Not Recovered/Not Resolved]
  - Pyrexia [Not Recovered/Not Resolved]
  - Hypotension [Not Recovered/Not Resolved]
  - Renal failure acute [Not Recovered/Not Resolved]
  - Lung infection [Not Recovered/Not Resolved]
  - Renal impairment [Not Recovered/Not Resolved]
  - Pneumonia [Recovering/Resolving]
  - Pseudomonas test positive [Recovering/Resolving]
  - Pleural effusion [Recovering/Resolving]
  - Haemorrhagic diathesis [Recovering/Resolving]
